FAERS Safety Report 22353952 (Version 4)
Quarter: 2023Q4

REPORT INFORMATION
  Report Type: Spontaneous
  Country: CA (occurrence: CA)
  Receive Date: 20230523
  Receipt Date: 20231002
  Transmission Date: 20240109
  Serious: Yes (Other)
  Sender: FDA-Public Use
  Company Number: CA-GLAXOSMITHKLINE-CA2023AMR029149

PATIENT

DRUGS (1)
  1. BENLYSTA [Suspect]
     Active Substance: BELIMUMAB
     Indication: Systemic lupus erythematosus
     Dosage: UNK

REACTIONS (22)
  - Systemic lupus erythematosus [Unknown]
  - Renal impairment [Unknown]
  - Insomnia [Unknown]
  - Arthralgia [Unknown]
  - Headache [Unknown]
  - Blood pressure fluctuation [Unknown]
  - Blister [Unknown]
  - Pruritus [Unknown]
  - Skin reaction [Unknown]
  - Fatigue [Unknown]
  - Pain [Unknown]
  - Mobility decreased [Unknown]
  - Biopsy skin [Unknown]
  - Peripheral swelling [Unknown]
  - Feeling hot [Unknown]
  - Gait disturbance [Unknown]
  - Illness [Unknown]
  - Cough [Unknown]
  - Gout [Unknown]
  - Muscle strain [Unknown]
  - Fatigue [Unknown]
  - Product dose omission issue [Unknown]
